FAERS Safety Report 9617589 (Version 1)
Quarter: 2013Q4

REPORT INFORMATION
  Report Type: Spontaneous
  Country: US (occurrence: US)
  Receive Date: 20131011
  Receipt Date: 20131011
  Transmission Date: 20140711
  Serious: No
  Sender: FDA-Public Use
  Company Number: US-PFIZER INC-2013288197

PATIENT
  Age: 79 Year
  Sex: Female
  Weight: 58.96 kg

DRUGS (6)
  1. ADVIL [Suspect]
     Indication: PAIN
     Dosage: 2 TABLET, AS NEEDED
     Route: 048
     Dates: start: 20131006
  2. LIPITOR [Interacting]
     Dosage: UNK
  3. ZOLOFT [Interacting]
     Dosage: UNK
  4. GABAPENTIN [Interacting]
     Dosage: UNK
  5. MELOXICAM [Interacting]
     Dosage: UNK
  6. TRIAMTERENE [Interacting]
     Dosage: UNK

REACTIONS (4)
  - Pruritus [Not Recovered/Not Resolved]
  - Urticaria [Not Recovered/Not Resolved]
  - Rash [Not Recovered/Not Resolved]
  - Drug interaction [Unknown]
